FAERS Safety Report 20305617 (Version 28)
Quarter: 2025Q2

REPORT INFORMATION
  Report Type: Spontaneous
  Country: US (occurrence: US)
  Receive Date: 20220106
  Receipt Date: 20250521
  Transmission Date: 20250717
  Serious: Yes (Hospitalization, Other)
  Sender: PFIZER
  Company Number: US-PFIZER INC-202101242590

PATIENT
  Age: 64 Year
  Sex: Female
  Weight: 72.57 kg

DRUGS (26)
  1. XELJANZ [Suspect]
     Active Substance: TOFACITINIB CITRATE
     Indication: Colitis
     Dosage: 5MG TABLET, [TAKE 3 TABLET BY MOUTH ONCE A DAY]
     Route: 048
     Dates: start: 20180622
  2. XELJANZ [Suspect]
     Active Substance: TOFACITINIB CITRATE
     Indication: Colitis ulcerative
     Route: 048
     Dates: start: 20190322, end: 2019
  3. XELJANZ [Suspect]
     Active Substance: TOFACITINIB CITRATE
     Dosage: 5MG TABLET, TWO TABLETS IN THE MORNING AND ONE TABLET IN THE EVENING/5MG THREE TIMES A DAY
     Route: 048
     Dates: start: 201903
  4. XELJANZ [Suspect]
     Active Substance: TOFACITINIB CITRATE
     Dosage: 10 MG, TWICE DAILY
     Route: 048
     Dates: start: 20190906
  5. XELJANZ [Suspect]
     Active Substance: TOFACITINIB CITRATE
     Dosage: 10 MG AM AND CUTTING 10 MG INTO HALF PM/XELJANZ 5MG 2 TABLETS AM AND 1 TABLET PM
     Route: 048
  6. XELJANZ [Suspect]
     Active Substance: TOFACITINIB CITRATE
     Dosage: 2 TABLETS IN AM AND 1 TABLET AT PM/HS
     Route: 048
  7. XELJANZ [Suspect]
     Active Substance: TOFACITINIB CITRATE
     Dosage: 5MG THREE TIMES A DAY/5MG TID (THREE TIMES A DAY)
     Route: 048
  8. XELJANZ [Suspect]
     Active Substance: TOFACITINIB CITRATE
     Dosage: 15MG A DAY/5MG, TAKE 3 TABLET BY MOUTH ONCE A DAY
     Route: 048
  9. XELJANZ [Suspect]
     Active Substance: TOFACITINIB CITRATE
     Dosage: 10MG IN THE MORNING AND 5MG IN THE EVENING
     Route: 048
  10. XELJANZ [Suspect]
     Active Substance: TOFACITINIB CITRATE
     Route: 048
  11. XELJANZ [Suspect]
     Active Substance: TOFACITINIB CITRATE
     Route: 048
  12. XELJANZ [Suspect]
     Active Substance: TOFACITINIB CITRATE
     Dosage: TAKE MEDICATION 2 IN THE MORNING AND 1 AT NIGHT
     Route: 048
  13. AMLODIPINE [Concomitant]
     Active Substance: AMLODIPINE BESYLATE
  14. CRANBERRY [Concomitant]
     Active Substance: CRANBERRY
  15. CRESTOR [Concomitant]
     Active Substance: ROSUVASTATIN CALCIUM
  16. FISH OIL [Concomitant]
     Active Substance: FISH OIL
  17. FLUTICASONE PROPIONATE [Concomitant]
     Active Substance: FLUTICASONE PROPIONATE
  18. HYDROCORTISONE [Concomitant]
     Active Substance: HYDROCORTISONE
  19. INTRAROSA [Concomitant]
     Active Substance: PRASTERONE
  20. LEVOTHYROXINE [Concomitant]
     Active Substance: LEVOTHYROXINE
  21. LORAZEPAM [Concomitant]
     Active Substance: LORAZEPAM
  22. PENTASA [Concomitant]
     Active Substance: MESALAMINE
  23. PREDNISONE [Concomitant]
     Active Substance: PREDNISONE
  24. FLUTICASONE PROPIONATE [Concomitant]
     Active Substance: FLUTICASONE PROPIONATE
  25. ULTRA FLORA DIGEST [Concomitant]
  26. VITAMIN C [Concomitant]
     Active Substance: ASCORBIC ACID

REACTIONS (13)
  - Faecaloma [Recovered/Resolved]
  - Sinusitis [Unknown]
  - Drug ineffective [Unknown]
  - Drug hypersensitivity [Unknown]
  - Infection [Recovering/Resolving]
  - Malaise [Unknown]
  - Blood cholesterol increased [Recovered/Resolved]
  - Urinary tract infection [Unknown]
  - Fatigue [Recovered/Resolved]
  - Pelvic floor muscle weakness [Unknown]
  - Off label use [Unknown]
  - Product dose omission issue [Unknown]
  - Wrong technique in product usage process [Unknown]

NARRATIVE: CASE EVENT DATE: 20190322
